FAERS Safety Report 4944116-X (Version None)
Quarter: 2006Q1

REPORT INFORMATION
  Report Type: 
  Country: None (occurrence: None)
  Receive Date: 20060221
  Receipt Date: 20060221
  Transmission Date: 20060701
  Serious: Yes (Hospitalization)
  Sender: FDA-Public Use
  Company Number: 2006-00393

PATIENT
  Age: 68 Year
  Sex: Male

DRUGS (20)
  1. VELCADE [Suspect]
     Indication: MULTIPLE MYELOMA
     Dosage: SEE IMAGE
     Dates: start: 20040126, end: 20050201
  2. VELCADE [Suspect]
     Indication: MULTIPLE MYELOMA
     Dosage: SEE IMAGE
     Dates: start: 20050614, end: 20050624
  3. SCIO-469J() [Suspect]
     Indication: MULTIPLE MYELOMA
     Dosage: 60.00 MG, TID, ORAL
     Route: 048
     Dates: start: 20050513, end: 20050707
  4. THALIDOMIDE [Suspect]
     Indication: MULTIPLE MYELOMA
     Dosage: SEE IMAGE
     Dates: start: 20050711, end: 20050712
  5. THALIDOMIDE [Suspect]
     Indication: MULTIPLE MYELOMA
     Dosage: SEE IMAGE
     Dates: start: 20050708
  6. DEXAMETHASONE TAB [Concomitant]
  7. CYCLOPHOSPHAMIDE [Concomitant]
  8. ETOPOSIDE [Concomitant]
  9. CISPLATIN [Concomitant]
  10. CYMBALTA [Concomitant]
  11. LISINOPRIL [Concomitant]
  12. FOLIC ACID [Concomitant]
  13. MULTIVITAMINS (ERGOCALCIFEROL, PANTHENOL, NICOTINAMIDE, RIBOFLAVIN, TH [Concomitant]
  14. CALCIUM GLUCONATE [Concomitant]
  15. VITAMIN B COMPLEX CAP [Concomitant]
  16. HYDROCHLOROTHIAZIDE [Concomitant]
  17. BACTRIM [Concomitant]
  18. LAXATIVES [Concomitant]
  19. RESTORIL [Concomitant]
  20. FAMVIR [Concomitant]

REACTIONS (15)
  - ANKLE FRACTURE [None]
  - BLOOD ALBUMIN DECREASED [None]
  - BLOOD MAGNESIUM DECREASED [None]
  - BLOOD UREA INCREASED [None]
  - BRAIN NATRIURETIC PEPTIDE INCREASED [None]
  - DIASTOLIC DYSFUNCTION [None]
  - DISEASE PROGRESSION [None]
  - FALL [None]
  - HYPERSENSITIVITY [None]
  - HYPOTENSION [None]
  - PANCYTOPENIA [None]
  - POST PROCEDURAL COMPLICATION [None]
  - SINUS BRADYCARDIA [None]
  - SINUSITIS [None]
  - SYNCOPE [None]
